FAERS Safety Report 12600330 (Version 1)
Quarter: 2016Q3

REPORT INFORMATION
  Report Type: Spontaneous
  Country: DK (occurrence: DK)
  Receive Date: 20160727
  Receipt Date: 20160727
  Transmission Date: 20161109
  Serious: Yes (Hospitalization)
  Sender: FDA-Public Use
  Company Number: PHHY2016DK100542

PATIENT
  Age: 71 Year
  Sex: Female

DRUGS (1)
  1. ALENDRONATE SANDOZ [Suspect]
     Active Substance: ALENDRONATE SODIUM
     Indication: OSTEOPOROSIS
     Dosage: 70 MG, QW,STRENGTH: 70 MG
     Route: 048
     Dates: start: 2009, end: 20150414

REACTIONS (4)
  - Tooth loss [Not Recovered/Not Resolved]
  - Loose tooth [Unknown]
  - Jaw operation [Recovered/Resolved]
  - Osteonecrosis of jaw [Not Recovered/Not Resolved]

NARRATIVE: CASE EVENT DATE: 201502
